FAERS Safety Report 23893980 (Version 1)
Quarter: 2024Q2

REPORT INFORMATION
  Report Type: Spontaneous
  Country: US (occurrence: US)
  Receive Date: 20240524
  Receipt Date: 20240524
  Transmission Date: 20240716
  Serious: Yes (Other)
  Sender: FDA-Public Use
  Company Number: US-ALEMBIC PHARMACUETICALS LIMITED-2024SCAL000625

PATIENT

DRUGS (6)
  1. TREPROSTINIL [Suspect]
     Active Substance: TREPROSTINIL
     Indication: Pulmonary hypertension
     Dosage: 30 NANOGRAM PER KILOGRAM PER MINUTE
     Route: 058
  2. TREPROSTINIL [Suspect]
     Active Substance: TREPROSTINIL
     Indication: Right-to-left cardiac shunt
     Dosage: UP?TITRATED BY 2NG/KG/MIN EVERY 2?4 WEEKS BEGINNING 1 MONTH AFTER STARTING
     Route: 058
  3. TADALAFIL [Suspect]
     Active Substance: TADALAFIL
     Indication: Right-to-left cardiac shunt
     Dosage: UNK
     Route: 065
  4. TADALAFIL [Suspect]
     Active Substance: TADALAFIL
     Indication: Pulmonary hypertension
  5. SELEXIPAG [Suspect]
     Active Substance: SELEXIPAG
     Indication: Right-to-left cardiac shunt
     Dosage: 1100 MICROGRAM, BID
     Route: 065
  6. SELEXIPAG [Suspect]
     Active Substance: SELEXIPAG
     Indication: Pulmonary hypertension

REACTIONS (3)
  - Pulmonary hypertension [Unknown]
  - Headache [Unknown]
  - Drug intolerance [Unknown]
